FAERS Safety Report 9327851 (Version 2)
Quarter: 2013Q2

REPORT INFORMATION
  Report Type: Report from Study
  Country: AR (occurrence: AR)
  Receive Date: 20130604
  Receipt Date: 20130624
  Transmission Date: 20140414
  Serious: Yes (Other)
  Sender: FDA-Public Use
  Company Number: AR-ABBOTT-13P-007-1097255-00

PATIENT
  Age: 74 Year
  Sex: Male

DRUGS (1)
  1. HUMIRA [Suspect]
     Indication: RHEUMATOID ARTHRITIS
     Route: 058
     Dates: start: 20080101

REACTIONS (5)
  - Pulmonary oedema [Recovering/Resolving]
  - Pneumonia [Unknown]
  - Dyspnoea [Recovered/Resolved]
  - Agitation [Recovered/Resolved]
  - Respiratory disorder [Recovered/Resolved]
